FAERS Safety Report 14279624 (Version 2)
Quarter: 2017Q4

REPORT INFORMATION
  Report Type: Spontaneous
  Country: JP (occurrence: JP)
  Receive Date: 20171213
  Receipt Date: 20171226
  Transmission Date: 20180321
  Serious: Yes (Hospitalization)
  Sender: FDA-Public Use
  Company Number: JP-009507513-1712JPN000903J

PATIENT
  Age: 81 Year
  Sex: Male

DRUGS (2)
  1. CALONAL [Concomitant]
     Active Substance: ACETAMINOPHEN
     Indication: ANALGESIC THERAPY
     Dosage: UNK
     Route: 065
  2. KEYTRUDA [Suspect]
     Active Substance: PEMBROLIZUMAB
     Indication: LUNG ADENOCARCINOMA
     Dosage: 200 MG, ONCE THREE WEEKS
     Route: 041
     Dates: start: 20171128

REACTIONS (6)
  - Pyrexia [Unknown]
  - Decreased appetite [Recovered/Resolved]
  - Tremor [Unknown]
  - White blood cell count increased [Unknown]
  - Dizziness [Unknown]
  - C-reactive protein increased [Unknown]

NARRATIVE: CASE EVENT DATE: 20171128
